FAERS Safety Report 4853711-8 (Version None)
Quarter: 2005Q4

REPORT INFORMATION
  Report Type: 
  Country: None (occurrence: None)
  Receive Date: 20051212
  Receipt Date: 20051123
  Transmission Date: 20060501
  Serious: Yes (Other)
  Sender: FDA-Public Use
  Company Number: GB200511002629

PATIENT
  Age: 28 Year
  Sex: Male

DRUGS (1)
  1. ZYPREXA [Suspect]
     Dosage: 30 MG, DAILY (1/D),
     Dates: start: 20051019

REACTIONS (2)
  - BUNDLE BRANCH BLOCK RIGHT [None]
  - PRESCRIBED OVERDOSE [None]
